FAERS Safety Report 9297784 (Version 1)
Quarter: 2013Q2

REPORT INFORMATION
  Report Type: Report from Study
  Country: BR (occurrence: BR)
  Receive Date: 20130520
  Receipt Date: 20130520
  Transmission Date: 20140414
  Serious: Yes (Death, Other)
  Sender: FDA-Public Use
  Company Number: PHHY2013BR049770

PATIENT
  Age: 78 Year
  Sex: Male
  Weight: 53 kg

DRUGS (2)
  1. FORASEQ [Suspect]
     Indication: EMPHYSEMA
     Dosage: 2 DF DAILY
     Dates: start: 201211, end: 20130212
  2. CHEMOTHERAPEUTICS NOS [Concomitant]

REACTIONS (5)
  - Emphysema [Fatal]
  - Prostate cancer [Fatal]
  - Condition aggravated [Fatal]
  - Bronchopneumonia [Recovered/Resolved]
  - Asthenia [Not Recovered/Not Resolved]
